FAERS Safety Report 4281196-1 (Version None)
Quarter: 2004Q1

REPORT INFORMATION
  Report Type: 
  Country: None (occurrence: None)
  Receive Date: 20040112
  Receipt Date: 20031003
  Transmission Date: 20041129
  Serious: Yes (Other)
  Sender: FDA-Public Use
  Company Number: 348344

PATIENT
  Age: 56 Year
  Sex: Female

DRUGS (3)
  1. FUZEON [Suspect]
     Indication: HIV INFECTION
     Dosage: 90 MG 2 PER DAY SUBCUTANEOUS
     Route: 058
     Dates: start: 20030909
  2. ADVIL [Suspect]
     Indication: DRUG USE FOR UNKNOWN INDICATION
  3. VIREAD [Concomitant]

REACTIONS (2)
  - EPISTAXIS [None]
  - OEDEMA PERIPHERAL [None]
